FAERS Safety Report 9677009 (Version 2)
Quarter: 2014Q4

REPORT INFORMATION
  Report Type: Report from Study
  Country: US (occurrence: US)
  Receive Date: 20131108
  Receipt Date: 20141229
  Transmission Date: 20150529
  Serious: Yes (Hospitalization)
  Sender: FDA-Public Use
  Company Number: US-BIOGENIDEC-2013BI105139

PATIENT
  Age: 29 Year
  Sex: Female

DRUGS (6)
  1. CAMRESE [Concomitant]
     Active Substance: ETHINYL ESTRADIOL\LEVONORGESTREL
     Route: 048
  2. AVONEX [Suspect]
     Active Substance: INTERFERON BETA-1A
     Indication: MULTIPLE SCLEROSIS
     Route: 030
     Dates: start: 200401, end: 2012
  3. PROVENTIL [Concomitant]
     Active Substance: ALBUTEROL
  4. TRAZODONE [Concomitant]
     Active Substance: TRAZODONE HYDROCHLORIDE
     Route: 048
  5. TIZANIDINE (TIZANIDINE) [Concomitant]
     Active Substance: TIZANIDINE
     Route: 048
  6. AVONEX [Suspect]
     Active Substance: INTERFERON BETA-1A
     Indication: MULTIPLE SCLEROSIS
     Route: 030
     Dates: start: 2012

REACTIONS (14)
  - Eosinophilic oesophagitis [Unknown]
  - Influenza like illness [Recovered/Resolved]
  - Loss of bladder sensation [Not Recovered/Not Resolved]
  - Fungal infection [Recovered/Resolved]
  - General symptom [Unknown]
  - Multiple sclerosis relapse [Recovered/Resolved]
  - Appendicitis [Recovered/Resolved]
  - Depression [Unknown]
  - Nausea [Unknown]
  - Fatigue [Unknown]
  - Urinary tract infection [Recovered/Resolved]
  - Scar [Unknown]
  - Drug dose omission [Unknown]
  - Asthma [Unknown]

NARRATIVE: CASE EVENT DATE: 2007
